FAERS Safety Report 4288992-5 (Version None)
Quarter: 2004Q1

REPORT INFORMATION
  Report Type: 
  Country: None (occurrence: None)
  Receive Date: 20040126
  Receipt Date: 20030924
  Transmission Date: 20041129
  Serious: Yes (Other)
  Sender: FDA-Public Use
  Company Number: USA021022493

PATIENT
  Age: 51 Year
  Sex: Female
  Weight: 57 kg

DRUGS (6)
  1. VANCOCIN HCL [Suspect]
     Indication: CLOSTRIDIAL INFECTION
     Dosage: 125 MG / 4 DAY
     Dates: start: 20020301
  2. FORTEO [Suspect]
     Indication: OSTEOPOROSIS
     Dates: start: 20030301
  3. DURAGESIC [Concomitant]
  4. FLAGYL [Concomitant]
  5. HYOSCYAMINE [Concomitant]
  6. ATROPINE W/ DIPHENOXYLATE [Concomitant]

REACTIONS (11)
  - CLOSTRIDIAL INFECTION [None]
  - DIARRHOEA [None]
  - DIFFICULTY IN WALKING [None]
  - EYE SWELLING [None]
  - INJECTION SITE ERYTHEMA [None]
  - INJECTION SITE HAEMORRHAGE [None]
  - MUSCLE ATROPHY [None]
  - RASH [None]
  - SWELLING FACE [None]
  - URTICARIA [None]
  - WEIGHT DECREASED [None]
